FAERS Safety Report 8423632-2 (Version None)
Quarter: 2012Q2

REPORT INFORMATION
  Report Type: 
  Country: None (occurrence: None)
  Receive Date: 20120608
  Receipt Date: 20120606
  Transmission Date: 20120825
  Serious: No
  Sender: FDA-Public Use
  Company Number: US-PFIZER INC-2012136974

PATIENT
  Age: 84 Year
  Sex: Male

DRUGS (2)
  1. LYRICA [Suspect]
     Dosage: 75 (UNITS NOT PROVIDED), 2X/DAY (BID)
  2. LYRICA [Suspect]
     Dosage: 150 (UNITS NOT PROVIDED), 2X/DAY (BID)

REACTIONS (2)
  - OEDEMA [None]
  - SYNCOPE [None]
